FAERS Safety Report 12718750 (Version 5)
Quarter: 2016Q4

REPORT INFORMATION
  Report Type: Spontaneous
  Country: US (occurrence: US)
  Receive Date: 20160906
  Receipt Date: 20161215
  Transmission Date: 20170207
  Serious: Yes (Other)
  Sender: FDA-Public Use
  Company Number: US-GLAXOSMITHKLINE-US2016128095

PATIENT
  Sex: Female

DRUGS (9)
  1. BREO ELLIPTA [Suspect]
     Active Substance: FLUTICASONE FUROATE\VILANTEROL TRIFENATATE
     Indication: ASTHMA
     Dosage: 1 PUFF(S), 1D
     Route: 055
     Dates: start: 201609, end: 201609
  2. ADVAIR DISKUS [Suspect]
     Active Substance: FLUTICASONE PROPIONATE\SALMETEROL XINAFOATE
     Indication: CHRONIC OBSTRUCTIVE PULMONARY DISEASE
  3. BREO ELLIPTA [Suspect]
     Active Substance: FLUTICASONE FUROATE\VILANTEROL TRIFENATATE
     Indication: CHRONIC OBSTRUCTIVE PULMONARY DISEASE
  4. ALBUTEROL SULFATE. [Concomitant]
     Active Substance: ALBUTEROL SULFATE
     Route: 055
  5. KLONOPIN [Concomitant]
     Active Substance: CLONAZEPAM
  6. GABAPENTIN. [Concomitant]
     Active Substance: GABAPENTIN
  7. ADVAIR DISKUS [Suspect]
     Active Substance: FLUTICASONE PROPIONATE\SALMETEROL XINAFOATE
     Indication: ASTHMA
     Dosage: 1 PUFF(S), BID
     Route: 055
  8. PROZAC [Concomitant]
     Active Substance: FLUOXETINE HYDROCHLORIDE
  9. VENTOLIN [Concomitant]
     Active Substance: ALBUTEROL SULFATE

REACTIONS (18)
  - Decreased appetite [Unknown]
  - Weight decreased [Unknown]
  - Throat irritation [Unknown]
  - Hyperhidrosis [Unknown]
  - Feeding disorder [Recovered/Resolved]
  - Lethargy [Unknown]
  - Haemoptysis [Not Recovered/Not Resolved]
  - Pneumonia [Recovering/Resolving]
  - Decreased activity [Unknown]
  - Pulmonary congestion [Unknown]
  - Dyspnoea [Recovering/Resolving]
  - Ear, nose and throat examination abnormal [Unknown]
  - Dizziness [Recovered/Resolved]
  - Oropharyngeal pain [Recovering/Resolving]
  - Dyspnoea exertional [Recovering/Resolving]
  - Drug ineffective [Unknown]
  - Immune system disorder [Unknown]
  - Presyncope [Recovered/Resolved]

NARRATIVE: CASE EVENT DATE: 2016
